FAERS Safety Report 23467221 (Version 1)
Quarter: 2024Q1

REPORT INFORMATION
  Report Type: Spontaneous
  Country: US (occurrence: US)
  Receive Date: 20240201
  Receipt Date: 20240201
  Transmission Date: 20240409
  Serious: Yes (Hospitalization)
  Sender: FDA-Public Use
  Company Number: US-Eisai-EC-2024-157728

PATIENT
  Sex: Male

DRUGS (8)
  1. RUFINAMIDE [Suspect]
     Active Substance: RUFINAMIDE
     Indication: Lennox-Gastaut syndrome
     Dosage: DOSE AND FREQUENCY UNKNOWN.
     Route: 048
  2. LACOSAMIDE [Suspect]
     Active Substance: LACOSAMIDE
     Indication: Lennox-Gastaut syndrome
     Dosage: DOSE AND FREQUENCY UNKNOWN.
     Route: 065
  3. FELBAMATE [Suspect]
     Active Substance: FELBAMATE
     Indication: Lennox-Gastaut syndrome
     Dosage: 62 MG/KG/DAY
     Route: 065
  4. FELBAMATE [Suspect]
     Active Substance: FELBAMATE
     Dosage: DOSE WEANED OFF TO DISCONTINUE.
     Route: 065
  5. FELBAMATE [Suspect]
     Active Substance: FELBAMATE
     Dosage: 10 MG/KG/DAY
     Route: 065
  6. ZONISAMIDE [Suspect]
     Active Substance: ZONISAMIDE
     Indication: Lennox-Gastaut syndrome
     Dosage: DOSE AND FREQUENCY UNKNOWN.
     Route: 065
  7. POTASSIUM CITRATE [Concomitant]
     Active Substance: POTASSIUM CITRATE
     Indication: Hypocitraturia
     Route: 065
  8. POTASSIUM CITRATE [Concomitant]
     Active Substance: POTASSIUM CITRATE
     Route: 065

REACTIONS (2)
  - Calculus urinary [Recovered/Resolved]
  - Anticonvulsant drug level increased [Unknown]
